FAERS Safety Report 13497515 (Version 3)
Quarter: 2017Q3

REPORT INFORMATION
  Report Type: Report from Study
  Country: US (occurrence: US)
  Receive Date: 20170428
  Receipt Date: 20170726
  Transmission Date: 20171127
  Serious: Yes (Hospitalization, Other)
  Sender: FDA-Public Use
  Company Number: US-TESARO, INC.-US-2016TSO00357

PATIENT
  Age: 51 Year
  Sex: Female

DRUGS (22)
  1. NIRAPARIB [Suspect]
     Active Substance: NIRAPARIB
     Dosage: 100 MG, QD
     Route: 048
     Dates: end: 20160729
  2. NIRAPARIB [Suspect]
     Active Substance: NIRAPARIB
     Indication: TRIPLE NEGATIVE BREAST CANCER
     Dosage: 200 MG, QD
     Route: 048
     Dates: start: 20160523, end: 20170605
  3. HYDROCODONE BITARTRATE AND ACETAMINOPHEN [Concomitant]
     Active Substance: ACETAMINOPHEN\HYDROCODONE BITARTRATE
     Indication: BACK PAIN
     Dosage: 1 G, PRN
     Route: 048
     Dates: start: 201512
  4. OXYCODONE [Concomitant]
     Active Substance: OXYCODONE
     Indication: BACK PAIN
     Dosage: 5 MG, PRN
     Route: 048
     Dates: start: 2015
  5. POTASSIUM [Concomitant]
     Active Substance: POTASSIUM
     Indication: HYPOKALAEMIA
     Dosage: 40 MEQ, SINGLE (ONE LITRE INTERVENTION)
     Route: 048
     Dates: start: 20160617, end: 20160617
  6. PREDNISONE. [Concomitant]
     Active Substance: PREDNISONE
     Indication: PNEUMONITIS
     Dosage: 60 MG, BID
     Route: 048
     Dates: start: 20161229
  7. SENNA                              /00142201/ [Concomitant]
     Active Substance: SENNA LEAF
     Indication: CONSTIPATION PROPHYLAXIS
     Dosage: 2 DF, BID
     Route: 048
     Dates: start: 20170101
  8. PEMBROLIZUMAB. [Suspect]
     Active Substance: PEMBROLIZUMAB
     Dosage: 200 MG, EVERY 21 DAYS
     Route: 042
     Dates: start: 20161111, end: 20161111
  9. BACTRIM [Concomitant]
     Active Substance: SULFAMETHOXAZOLE\TRIMETHOPRIM
     Indication: INFECTION PROPHYLAXIS
     Dosage: 1 DF, MONDAY/WEDNESDAY/FRIDAY
     Route: 048
     Dates: start: 20161130, end: 20170101
  10. DECADRON [Concomitant]
     Active Substance: DEXAMETHASONE
     Indication: STOMATITIS
     Dosage: 10 ML, QD
     Route: 048
     Dates: start: 20160606, end: 20160822
  11. DECADRON [Concomitant]
     Active Substance: DEXAMETHASONE
     Indication: OROPHARYNGEAL PAIN
  12. FENTANYL. [Concomitant]
     Active Substance: FENTANYL
     Indication: BACK PAIN
     Dosage: 1 DF, UNK
     Route: 062
     Dates: start: 20161230
  13. LASIX [Concomitant]
     Active Substance: FUROSEMIDE
     Indication: OEDEMA
     Dosage: 40 MG, QD
     Route: 048
     Dates: start: 20170101
  14. PEMBROLIZUMAB. [Suspect]
     Active Substance: PEMBROLIZUMAB
     Indication: TRIPLE NEGATIVE BREAST CANCER
     Dosage: 200 MG, EVERY 21 DAYS
     Route: 042
     Dates: start: 20160523, end: 20160523
  15. ALEVE [Concomitant]
     Active Substance: NAPROXEN SODIUM
     Indication: BACK PAIN
     Dosage: 220 MG, PRN
     Route: 048
     Dates: start: 201512
  16. INSULIN LISPRO [Concomitant]
     Active Substance: INSULIN LISPRO
     Indication: HYPERGLYCAEMIA
     Dosage: 15 ML, UNKNOWN
     Route: 058
     Dates: start: 20161230
  17. SOLU-MEDROL [Concomitant]
     Active Substance: METHYLPREDNISOLONE SODIUM SUCCINATE
     Indication: PNEUMONITIS
     Dosage: 60 MG, BID
     Route: 042
     Dates: start: 20161225, end: 20161225
  18. DILAUDID [Concomitant]
     Active Substance: HYDROMORPHONE HYDROCHLORIDE
     Indication: BACK PAIN
     Dosage: 2 MG, PRN
     Route: 048
     Dates: start: 20161230
  19. LEVOFLOXACIN. [Concomitant]
     Active Substance: LEVOFLOXACIN
     Indication: INFECTION PROPHYLAXIS
     Dosage: 3 DF, QAM EVERY MORNING
     Route: 048
     Dates: start: 20161229, end: 20170104
  20. GABAPENTIN. [Concomitant]
     Active Substance: GABAPENTIN
     Indication: BACK PAIN
     Dosage: 300 MG, QPM (EVERY EVENING)
     Route: 048
     Dates: start: 20161230
  21. INSULIN GLARGINE [Concomitant]
     Active Substance: INSULIN GLARGINE
     Indication: HYPERGLYCAEMIA
     Dosage: 3 ML, QPM
     Route: 058
     Dates: start: 20161220
  22. ATOVAQUONE. [Concomitant]
     Active Substance: ATOVAQUONE
     Indication: PNEUMOCYSTIS JIROVECII PNEUMONIA
     Dosage: 750 MG, BID
     Dates: start: 20170101

REACTIONS (3)
  - Back pain [Recovered/Resolved]
  - Hyperglycaemia [Recovered/Resolved]
  - Mental status changes [Recovered/Resolved]

NARRATIVE: CASE EVENT DATE: 20161222
